FAERS Safety Report 22198641 (Version 1)
Quarter: 2023Q2

REPORT INFORMATION
  Report Type: Spontaneous
  Country: US (occurrence: US)
  Receive Date: 20230411
  Receipt Date: 20230411
  Transmission Date: 20230722
  Serious: No
  Sender: FDA-Public Use
  Company Number: US-MYLANLABS-2023M1036437

PATIENT
  Sex: Female

DRUGS (1)
  1. URSODIOL CAPSULES [Suspect]
     Active Substance: URSODIOL
     Indication: Product used for unknown indication
     Dosage: 500 MILLIGRAM, QD( 500 MG/PER DAY)
     Route: 065

REACTIONS (1)
  - Drug intolerance [Unknown]
